FAERS Safety Report 25652427 (Version 2)
Quarter: 2025Q4

REPORT INFORMATION
  Report Type: Spontaneous
  Country: EU (occurrence: EU)
  Receive Date: 20250807
  Receipt Date: 20251021
  Transmission Date: 20260118
  Serious: Yes (Other)
  Sender: ABBVIE
  Company Number: None

PATIENT
  Age: 64 Year
  Sex: Female

DRUGS (6)
  1. BRIMONIDINE [Suspect]
     Active Substance: BRIMONIDINE TARTRATE
     Indication: Product used for unknown indication
     Dosage: EYE DROP SINGLE-DOSE CONTAINER.
     Route: 050
  2. DORZOLAMIDE [Suspect]
     Active Substance: DORZOLAMIDE
     Indication: Product used for unknown indication
     Dosage: DORZOLAMIDE 20 MG/ML +5 MG/ML EYE DROPS, SOLUTION IN A MULTI-DOSE BOTTLE
     Route: 065
  3. DAPAGLIFLOZIN [Suspect]
     Active Substance: DAPAGLIFLOZIN
     Indication: Cardiac failure
     Dosage: 1-0-0?10 MG FILM-COATED TABLETS
     Route: 048
     Dates: start: 20250513
  4. LEVOTHYROXINE SODIUM [Concomitant]
     Active Substance: LEVOTHYROXINE SODIUM
     Indication: Hypothyroidism
     Dosage: FOR AT LEAST 2 YEARS
     Route: 065
  5. ASPIRIN [Concomitant]
     Active Substance: ASPIRIN
     Indication: Product used for unknown indication
     Dosage: 1-0-0 AT LEAST SINCE APRIL 2024
     Route: 048
     Dates: start: 202504
  6. BIMATOPROST [Suspect]
     Active Substance: BIMATOPROST
     Indication: Product used for unknown indication
     Dosage: EYEDROP SOLUTION IN SINGLE DOSE CONTAINER.?ROUTE OF ADMINISTRATION: OPHTHALMIC
     Route: 065

REACTIONS (8)
  - Polyneuropathy [Recovered/Resolved]
  - Myalgia [Not Recovered/Not Resolved]
  - Hyperkeratosis [Recovered/Resolved]
  - Allodynia [Recovered/Resolved]
  - Blister [Recovered/Resolved]
  - Arthralgia [Recovered/Resolved]
  - Urinary incontinence [Recovered/Resolved]
  - Skin exfoliation [Recovered/Resolved]

NARRATIVE: CASE EVENT DATE: 20250501
